FAERS Safety Report 12513316 (Version 1)
Quarter: 2016Q2

REPORT INFORMATION
  Report Type: Spontaneous
  Country: US (occurrence: None)
  Receive Date: 20160629
  Receipt Date: 20160629
  Transmission Date: 20160815
  Serious: Yes (Hospitalization)
  Sender: FDA-Public Use
  Company Number: None

PATIENT
  Age: 36 Year
  Sex: Female
  Weight: 52.16 kg

DRUGS (1)
  1. MIRENA [Suspect]
     Active Substance: LEVONORGESTREL

REACTIONS (5)
  - Device dislocation [None]
  - Uterine perforation [None]
  - Complication of device removal [None]
  - Vaginal haemorrhage [None]
  - Device breakage [None]

NARRATIVE: CASE EVENT DATE: 20160620
